FAERS Safety Report 24784391 (Version 1)
Quarter: 2024Q4

REPORT INFORMATION
  Report Type: Spontaneous
  Country: US (occurrence: US)
  Receive Date: 20241227
  Receipt Date: 20241227
  Transmission Date: 20250115
  Serious: Yes (Death, Hospitalization)
  Sender: MYLAN
  Company Number: US-MYLANLABS-2024M1117044

PATIENT
  Sex: Male

DRUGS (1)
  1. SCOPOLAMINE TRANSDERMAL SYSTEM [Suspect]
     Active Substance: SCOPOLAMINE
     Indication: Dizziness
     Dosage: UNK
     Route: 065

REACTIONS (6)
  - Death [Fatal]
  - Vomiting [Unknown]
  - Illness [Unknown]
  - Dizziness [Unknown]
  - Hallucination [Unknown]
  - Off label use [Unknown]
